FAERS Safety Report 15146603 (Version 1)
Quarter: 2018Q3

REPORT INFORMATION
  Report Type: Spontaneous
  Country: US (occurrence: US)
  Receive Date: 20180715
  Receipt Date: 20180715
  Transmission Date: 20181010
  Serious: No
  Sender: FDA-Public Use
  Company Number: US-JNJFOC-20180638700

PATIENT
  Age: 45 Year
  Sex: Female
  Weight: 48.99 kg

DRUGS (2)
  1. STELARA [Suspect]
     Active Substance: USTEKINUMAB
     Indication: CROHN^S DISEASE
     Route: 042
  2. STELARA [Suspect]
     Active Substance: USTEKINUMAB
     Indication: CROHN^S DISEASE
     Dosage: SUBCUTANEOUS
     Route: 042

REACTIONS (3)
  - Product storage error [Unknown]
  - Procedural pain [Unknown]
  - Hypersomnia [Unknown]

NARRATIVE: CASE EVENT DATE: 20180626
